FAERS Safety Report 7711815-6 (Version None)
Quarter: 2011Q3

REPORT INFORMATION
  Report Type: 
  Country: None (occurrence: None)
  Receive Date: 20110826
  Receipt Date: 20110818
  Transmission Date: 20111222
  Serious: Yes (Other)
  Sender: FDA-Public Use
  Company Number: US-ASTELLAS-2011US005113

PATIENT

DRUGS (9)
  1. ASPIRIN [Concomitant]
     Indication: ANTICOAGULANT THERAPY
     Dosage: 81 MG, UID/QD
     Route: 048
     Dates: start: 20010106
  2. MULTI-VITAMIN [Concomitant]
     Indication: VITAMIN SUPPLEMENTATION
     Dosage: 1 DF, UID/QD
     Route: 048
     Dates: start: 20010106
  3. CALCIUM CARBONATE [Concomitant]
     Indication: CALCIUM DEFICIENCY
     Dosage: 1000 U, UID/QD
     Route: 048
     Dates: start: 20010106
  4. CELLCEPT [Concomitant]
     Indication: RENAL AND PANCREAS TRANSPLANT
     Dosage: 500 MG, BID
     Route: 048
     Dates: start: 20010106
  5. SYNTHROID [Concomitant]
     Indication: HYPOTHYROIDISM
     Dosage: 0.275 MG, UID/QD
     Route: 048
     Dates: start: 19970101
  6. PREDNISONE [Concomitant]
     Indication: RENAL AND PANCREAS TRANSPLANT
     Dosage: 10 MG, UID/QD
     Route: 048
     Dates: start: 20010106
  7. PROGRAF [Suspect]
     Indication: RENAL TRANSPLANT
  8. NORVASC [Concomitant]
     Indication: HYPERTENSION
     Dosage: 10 MG, UID/QD
     Route: 048
     Dates: start: 19980101
  9. PROGRAF [Suspect]
     Indication: PANCREAS TRANSPLANT
     Dosage: 1.5 MG, BID
     Route: 048
     Dates: start: 20010106

REACTIONS (3)
  - DIABETIC ULCER [None]
  - OFF LABEL USE [None]
  - AMPUTATION [None]
